FAERS Safety Report 23118113 (Version 4)
Quarter: 2024Q2

REPORT INFORMATION
  Report Type: Spontaneous
  Country: US (occurrence: US)
  Receive Date: 20231027
  Receipt Date: 20240530
  Transmission Date: 20240716
  Serious: No
  Sender: FDA-Public Use
  Company Number: US-THERATECHNOLOGIES INC.-2023-THE-TES-000419

PATIENT

DRUGS (1)
  1. EGRIFTA SV [Suspect]
     Active Substance: TESAMORELIN ACETATE
     Indication: Lipodystrophy acquired
     Dosage: 1.4 MG, QD (0.35 ML OF THE RECONSTITUTED SOLUTION)
     Route: 058
     Dates: start: 20231012

REACTIONS (9)
  - Wrong technique in product usage process [Recovering/Resolving]
  - Incorrect dose administered [Unknown]
  - Multiple use of single-use product [Recovering/Resolving]
  - Incorrect dose administered [Recovering/Resolving]
  - Distractibility [Recovering/Resolving]
  - Injection site haemorrhage [Recovering/Resolving]
  - Injection site pruritus [Recovered/Resolved]
  - Injection site pruritus [Recovering/Resolving]
  - Drug ineffective [Not Recovered/Not Resolved]

NARRATIVE: CASE EVENT DATE: 20231001
